FAERS Safety Report 20860437 (Version 1)
Quarter: 2022Q2

REPORT INFORMATION
  Report Type: Spontaneous
  Country: US (occurrence: US)
  Receive Date: 20220523
  Receipt Date: 20220523
  Transmission Date: 20220721
  Serious: Yes (Hospitalization)
  Sender: FDA-Public Use
  Company Number: US-CADILA HEALTHCARE LIMITED-US-ZYDUS-075039

PATIENT

DRUGS (4)
  1. BOSENTAN [Suspect]
     Active Substance: BOSENTAN
     Indication: Pulmonary arterial hypertension
     Dosage: 125 MILLIGRAM, BID
     Route: 048
     Dates: start: 20200214
  2. BOSENTAN [Suspect]
     Active Substance: BOSENTAN
     Dosage: 125 MILLIGRAM, BID
     Route: 048
     Dates: start: 20200214
  3. ELIQUIS [Concomitant]
     Active Substance: APIXABAN
     Indication: Product used for unknown indication
     Route: 065
  4. TYVASO [Concomitant]
     Active Substance: TREPROSTINIL
     Indication: Product used for unknown indication
     Route: 048

REACTIONS (4)
  - Dyspnoea [Unknown]
  - Chest pain [Unknown]
  - Fatigue [Unknown]
  - Panic attack [Unknown]
